FAERS Safety Report 18281489 (Version 7)
Quarter: 2022Q2

REPORT INFORMATION
  Report Type: Report from Study
  Country: US (occurrence: US)
  Receive Date: 20200918
  Receipt Date: 20220613
  Transmission Date: 20220721
  Serious: No
  Sender: FDA-Public Use
  Company Number: US-ACADIA PHARMACEUTICALS INC.-ACA-2020-PIM-002832

PATIENT
  Sex: Male
  Weight: 71 kg

DRUGS (4)
  1. NUPLAZID [Suspect]
     Active Substance: PIMAVANSERIN TARTRATE
     Indication: Parkinson^s disease psychosis
     Dosage: 34 MILLIGRAM, QD
     Route: 065
     Dates: start: 201906, end: 201907
  2. NUPLAZID [Suspect]
     Active Substance: PIMAVANSERIN TARTRATE
     Indication: Hallucination
     Dosage: 34 MILLIGRAM, QD
     Route: 065
     Dates: start: 202003
  3. NUPLAZID [Suspect]
     Active Substance: PIMAVANSERIN TARTRATE
     Indication: Delusion
     Dosage: 34 MILLIGRAM, QD
     Route: 048
     Dates: start: 20200831
  4. SINEMET [Concomitant]
     Active Substance: CARBIDOPA\LEVODOPA

REACTIONS (17)
  - Weight decreased [Unknown]
  - Weight decreased [Unknown]
  - Product dose omission issue [Unknown]
  - Mental status changes [Unknown]
  - Tremor [Unknown]
  - Condition aggravated [Unknown]
  - Movement disorder [Unknown]
  - Cognitive disorder [Unknown]
  - Product dose omission issue [Unknown]
  - Aphasia [Unknown]
  - Tremor [Unknown]
  - Dysphagia [Unknown]
  - Eye disorder [Unknown]
  - Therapeutic product effect decreased [Unknown]
  - Fall [Unknown]
  - Hallucination [Unknown]
  - Aggression [Unknown]

NARRATIVE: CASE EVENT DATE: 20200101
